FAERS Safety Report 12402176 (Version 3)
Quarter: 2017Q2

REPORT INFORMATION
  Report Type: Spontaneous
  Country: US (occurrence: US)
  Receive Date: 20160525
  Receipt Date: 20170606
  Transmission Date: 20170830
  Serious: Yes (Other)
  Sender: FDA-Public Use
  Company Number: US-SA-2016SA011622

PATIENT
  Age: 45 Year
  Sex: Male

DRUGS (7)
  1. QUINAPRIL. [Concomitant]
     Active Substance: QUINAPRIL
     Indication: BLOOD PRESSURE MEASUREMENT
     Dosage: STRENGTH: 40 MG
  2. QUINAPRIL. [Concomitant]
     Active Substance: QUINAPRIL
     Indication: RENAL DISORDER
     Dosage: STRENGTH: 40 MG
  3. LANTUS SOLOSTAR [Suspect]
     Active Substance: INSULIN GLARGINE
     Indication: TYPE 1 DIABETES MELLITUS
     Dosage: DOSE: 10 U/ 47 U
     Route: 065
     Dates: start: 20140410
  4. SOLOSTAR [Concomitant]
     Active Substance: DEVICE
     Dates: start: 20140410
  5. NOVOLOG [Concomitant]
     Active Substance: INSULIN ASPART
     Indication: DIABETES MELLITUS
     Dosage: DOSE:25 UNIT(S)
     Dates: start: 20110510
  6. OMEPRAZOLE. [Concomitant]
     Active Substance: OMEPRAZOLE
     Indication: GASTROOESOPHAGEAL REFLUX DISEASE
     Dosage: STRENGTH: 40 MG
     Dates: start: 20110510
  7. FLEXPEN [Concomitant]
     Active Substance: UNSPECIFIED INGREDIENT
     Dates: start: 20110510

REACTIONS (2)
  - Retinopathy [Unknown]
  - Product use issue [Unknown]

NARRATIVE: CASE EVENT DATE: 20140410
